FAERS Safety Report 11043571 (Version 1)
Quarter: 2015Q2

REPORT INFORMATION
  Report Type: Report from Study
  Country: FR (occurrence: FR)
  Receive Date: 20150417
  Receipt Date: 20150417
  Transmission Date: 20150821
  Serious: Yes (Death, Hospitalization)
  Sender: FDA-Public Use
  Company Number: FR-ROCHE-1163500

PATIENT
  Age: 80 Year
  Sex: Male

DRUGS (2)
  1. CORTANCYL [Concomitant]
     Active Substance: PREDNISONE
     Route: 065
  2. RITUXIMAB [Suspect]
     Active Substance: RITUXIMAB
     Indication: RHEUMATOID ARTHRITIS
     Route: 042
     Dates: start: 20080717, end: 20080731

REACTIONS (2)
  - Disorientation [Recovered/Resolved]
  - Septic shock [Fatal]

NARRATIVE: CASE EVENT DATE: 20090724
